FAERS Safety Report 4920511-X (Version None)
Quarter: 2006Q1

REPORT INFORMATION
  Report Type: 
  Country: None (occurrence: None)
  Receive Date: 20060217
  Receipt Date: 20060206
  Transmission Date: 20060701
  Serious: Yes (Other)
  Sender: FDA-Public Use
  Company Number: 230272K06USA

PATIENT
  Age: 58 Year
  Sex: Female

DRUGS (4)
  1. REBIF [Suspect]
     Indication: MULTIPLE SCLEROSIS
     Dosage: 44 MCG 3 IN 1 WEEKS
     Dates: end: 20060101
  2. SYNTHROID [Concomitant]
  3. PREMARIN [Concomitant]
  4. LEXAPRO [Concomitant]

REACTIONS (11)
  - CEREBROVASCULAR ACCIDENT [None]
  - CONVULSION [None]
  - DEPRESSED LEVEL OF CONSCIOUSNESS [None]
  - DYSKINESIA [None]
  - FATIGUE [None]
  - HEAD DISCOMFORT [None]
  - HEADACHE [None]
  - MOVEMENT DISORDER [None]
  - NECK PAIN [None]
  - UPPER LIMB FRACTURE [None]
  - URINARY INCONTINENCE [None]
